FAERS Safety Report 18085736 (Version 1)
Quarter: 2020Q3

REPORT INFORMATION
  Report Type: Spontaneous
  Country: US (occurrence: US)
  Receive Date: 20200728
  Receipt Date: 20200728
  Transmission Date: 20201103
  Serious: Yes (Death)
  Sender: FDA-Public Use
  Company Number: None

PATIENT
  Age: 59 Year
  Sex: Male
  Weight: 114.7 kg

DRUGS (7)
  1. DEXAMETHASONE. [Concomitant]
     Active Substance: DEXAMETHASONE
     Dates: start: 20200713, end: 20200725
  2. MIDAZOLAM INFUSION [Concomitant]
     Active Substance: MIDAZOLAM HYDROCHLORIDE
     Dates: start: 20200717, end: 20200727
  3. REMDESIVIR. [Suspect]
     Active Substance: REMDESIVIR
     Indication: COVID-19
     Route: 040
     Dates: start: 20200713, end: 20200716
  4. NOREPINEPHRINE INFUSION [Concomitant]
     Dates: start: 20200717, end: 20200727
  5. CISATRACURIUM INFUSION [Concomitant]
     Dates: start: 20200716, end: 20200727
  6. FENTANYL INFUSION [Concomitant]
     Active Substance: FENTANYL
     Dates: start: 20200717, end: 20200727
  7. EPOPROSTENOL NEBULIZATION [Concomitant]
     Dates: start: 20200718, end: 20200727

REACTIONS (10)
  - Therapy interrupted [None]
  - Pulmonary embolism [None]
  - Haemofiltration [None]
  - Shock [None]
  - Klebsiella bacteraemia [None]
  - Transaminases increased [None]
  - General physical health deterioration [None]
  - Device related thrombosis [None]
  - Hypotension [None]
  - Acinetobacter bacteraemia [None]

NARRATIVE: CASE EVENT DATE: 20200727
